FAERS Safety Report 11183655 (Version 3)
Quarter: 2015Q3

REPORT INFORMATION
  Report Type: Spontaneous
  Country: ES (occurrence: ES)
  Receive Date: 20150612
  Receipt Date: 20150714
  Transmission Date: 20151125
  Serious: Yes (Hospitalization)
  Sender: FDA-Public Use
  Company Number: ES-AMGEN-ESPSP2015049960

PATIENT
  Age: 80 Year
  Sex: Female

DRUGS (10)
  1. BONESIL D FLAS [Concomitant]
     Indication: OSTEOPOROSIS
     Dosage: 1 DF, 1X/DAY
  2. ORFIDAL [Concomitant]
     Active Substance: LORAZEPAM
     Dosage: 1 DF, 1X/DAY
  3. ENBREL [Suspect]
     Active Substance: ETANERCEPT
     Indication: RHEUMATOID ARTHRITIS
     Dosage: 50 MG, WEEKLY (ON FRIDAY)
     Route: 058
     Dates: start: 20150327
  4. OMEPRAZOLE. [Concomitant]
     Active Substance: OMEPRAZOLE
     Indication: PROPHYLAXIS
     Dosage: 1 DF, 1X/DAY
  5. PREDNISONE. [Concomitant]
     Active Substance: PREDNISONE
     Dosage: 78.5 MG, AS NEEDED (ON ALTERNATES DAYS)
  6. PROLIA [Concomitant]
     Active Substance: DENOSUMAB
     Indication: OSTEOPOROSIS
     Dosage: 1 DF, AS NEEDED (1 INJECTION EVERY 6 MONTHS)
  7. PREDNISONE. [Concomitant]
     Active Substance: PREDNISONE
     Indication: RHEUMATOID ARTHRITIS
     Dosage: 5 MG, AS NEEDED (ON ALTERNATES DATES)
  8. EMCONCOR [Concomitant]
     Active Substance: BISOPROLOL FUMARATE
     Dosage: 2.5 MG, 1X/DAY
  9. SINTROM [Concomitant]
     Active Substance: ACENOCOUMAROL
     Indication: CEREBROVASCULAR ACCIDENT
     Dosage: 2 MG, 1X/DAY (2 TABLETS EVERY 24 HOURS)
  10. LEFLUNOMIDE. [Concomitant]
     Active Substance: LEFLUNOMIDE
     Indication: RHEUMATOID ARTHRITIS
     Dosage: 20 MG, 1X/DAY

REACTIONS (3)
  - Atrial fibrillation [Recovered/Resolved]
  - Abdominal pain upper [Recovered/Resolved]
  - Back pain [Recovered/Resolved]

NARRATIVE: CASE EVENT DATE: 2015
